FAERS Safety Report 17554753 (Version 1)
Quarter: 2020Q1

REPORT INFORMATION
  Report Type: Spontaneous
  Country: US (occurrence: US)
  Receive Date: 20200318
  Receipt Date: 20200318
  Transmission Date: 20200409
  Serious: Yes (Other)
  Sender: FDA-Public Use
  Company Number: US-ROCHE-2565332

PATIENT
  Sex: Female

DRUGS (7)
  1. DALFAMPRIDINE. [Concomitant]
     Active Substance: DALFAMPRIDINE
  2. CLOBETASOL [Concomitant]
     Active Substance: CLOBETASOL
  3. BIOTIN [Concomitant]
     Active Substance: BIOTIN
  4. BACLOFEN. [Concomitant]
     Active Substance: BACLOFEN
  5. TRILEPTAL [Concomitant]
     Active Substance: OXCARBAZEPINE
  6. OCREVUS [Suspect]
     Active Substance: OCRELIZUMAB
     Indication: MULTIPLE SCLEROSIS
     Route: 065
     Dates: start: 20190416, end: 20190430
  7. OCREVUS [Suspect]
     Active Substance: OCRELIZUMAB
     Route: 065
     Dates: start: 20191023

REACTIONS (1)
  - Breast cancer [Unknown]
